FAERS Safety Report 4383533-6 (Version None)
Quarter: 2004Q2

REPORT INFORMATION
  Report Type: 
  Country: None (occurrence: None)
  Receive Date: 20040623
  Receipt Date: 20040617
  Transmission Date: 20050107
  Serious: Yes (Hospitalization, Disabling)
  Sender: FDA-Public Use
  Company Number: US-MERCK-0406USA01761

PATIENT
  Age: 43 Year
  Sex: Female

DRUGS (3)
  1. [THERAPY UNSPECIFIED] [Concomitant]
     Route: 065
  2. PROZAC [Concomitant]
     Route: 065
  3. VIOXX [Suspect]
     Indication: MENSTRUATION IRREGULAR
     Route: 048

REACTIONS (2)
  - INTESTINAL ULCER PERFORATION [None]
  - OVERDOSE [None]
